FAERS Safety Report 15009528 (Version 1)
Quarter: 2018Q2

REPORT INFORMATION
  Report Type: Spontaneous
  Country: US (occurrence: US)
  Receive Date: 20180614
  Receipt Date: 20180614
  Transmission Date: 20180711
  Serious: Yes (Hospitalization)
  Sender: FDA-Public Use
  Company Number: US-AMGEN-USASP2018078700

PATIENT
  Age: 69 Year
  Sex: Female
  Weight: 45.35 kg

DRUGS (3)
  1. NEULASTA [Suspect]
     Active Substance: PEGFILGRASTIM
     Indication: NEUTROPENIA
     Dosage: 6 MG, AFTER CHEMO
     Route: 065
     Dates: start: 20180524, end: 20180525
  2. RITUXAN [Concomitant]
     Active Substance: RITUXIMAB
     Indication: WALDENSTROM^S MACROGLOBULINAEMIA
     Dosage: UNK ON DAY 1
     Dates: start: 20180523
  3. BENDAMUSTINE [Concomitant]
     Active Substance: BENDAMUSTINE
     Indication: WALDENSTROM^S MACROGLOBULINAEMIA
     Dosage: UNK ON DAY 1 AND 2
     Dates: start: 20180523

REACTIONS (6)
  - Pyrexia [Not Recovered/Not Resolved]
  - Back pain [Not Recovered/Not Resolved]
  - White blood cell count abnormal [Not Recovered/Not Resolved]
  - Influenza like illness [Not Recovered/Not Resolved]
  - Poor quality sleep [Not Recovered/Not Resolved]
  - Bone pain [Not Recovered/Not Resolved]

NARRATIVE: CASE EVENT DATE: 201805
